FAERS Safety Report 8289793-3 (Version None)
Quarter: 2012Q2

REPORT INFORMATION
  Report Type: 
  Country: None (occurrence: None)
  Receive Date: 20120417
  Receipt Date: 20120411
  Transmission Date: 20120825
  Serious: No
  Sender: FDA-Public Use
  Company Number: US-PFIZER INC-2012092164

PATIENT
  Age: 58 Year
  Sex: Female

DRUGS (1)
  1. NORVASC [Suspect]
     Dosage: UNK

REACTIONS (2)
  - ACTIVITIES OF DAILY LIVING IMPAIRED [None]
  - OEDEMA PERIPHERAL [None]
